FAERS Safety Report 9916109 (Version 2)
Quarter: 2014Q1

REPORT INFORMATION
  Report Type: Report from Study
  Country: AU (occurrence: AU)
  Receive Date: 20140221
  Receipt Date: 20140306
  Transmission Date: 20141002
  Serious: Yes (Hospitalization, Other)
  Sender: FDA-Public Use
  Company Number: AU-BRISTOL-MYERS SQUIBB COMPANY-20190773

PATIENT
  Age: 36 Year
  Sex: Female

DRUGS (4)
  1. ORENCIA [Suspect]
     Indication: RHEUMATOID ARTHRITIS
     Dosage: LAST DOSE ON 01FEB14
     Route: 042
  2. CIPRAMIL [Concomitant]
  3. NUROFEN [Concomitant]
  4. METHOTREXATE [Concomitant]

REACTIONS (1)
  - Finger deformity [Unknown]
